FAERS Safety Report 24844844 (Version 1)
Quarter: 2025Q1

REPORT INFORMATION
  Report Type: Spontaneous
  Country: US (occurrence: US)
  Receive Date: 20250115
  Receipt Date: 20250115
  Transmission Date: 20250408
  Serious: Yes (Other)
  Sender: TAKEDA
  Company Number: US-TAKEDA-2025TUS004282

PATIENT
  Age: 30 Year
  Sex: Female

DRUGS (4)
  1. SODIUM PHENYLACETATE AND SODIUM BENZOATE [Suspect]
     Active Substance: SODIUM BENZOATE\SODIUM PHENYLACETATE
     Indication: Mental status changes
  2. SODIUM PHENYLACETATE AND SODIUM BENZOATE [Suspect]
     Active Substance: SODIUM BENZOATE\SODIUM PHENYLACETATE
     Indication: Ammonia increased
  3. ARGININE [Suspect]
     Active Substance: ARGININE
     Indication: Mental status changes
  4. ARGININE [Suspect]
     Active Substance: ARGININE
     Indication: Ammonia increased

REACTIONS (2)
  - Therapy non-responder [Unknown]
  - Maternal exposure during pregnancy [Unknown]
